FAERS Safety Report 8821664 (Version 1)
Quarter: 2012Q4

REPORT INFORMATION
  Report Type: 
  Country: US (occurrence: US)
  Receive Date: 20121002
  Receipt Date: 20121002
  Transmission Date: 20130627
  Serious: No
  Sender: FDA-Public Use
  Company Number: US-VERTEX PHARMACEUTICAL INC.-2012-020486

PATIENT
  Age: 47 Year
  Sex: Male
  Weight: 90 kg

DRUGS (4)
  1. VX-950 [Suspect]
     Indication: HEPATITIS C
     Dosage: 750 mg, tid
     Route: 048
  2. PEGINTRON                          /01543001/ [Concomitant]
     Indication: HEPATITIS C
     Dosage: 150 ?g, UNK
  3. RIBAVIRIN [Concomitant]
     Indication: HEPATITIS C
     Dosage: 200 mg, UNK
  4. ADVIL                              /00044201/ [Concomitant]
     Dosage: 200 mg, UNK

REACTIONS (2)
  - Influenza like illness [Not Recovered/Not Resolved]
  - Anaemia [Unknown]
